FAERS Safety Report 7460157-5 (Version None)
Quarter: 2011Q2

REPORT INFORMATION
  Report Type: 
  Country: None (occurrence: None)
  Receive Date: 20110505
  Receipt Date: 20110427
  Transmission Date: 20111010
  Serious: Yes (Other)
  Sender: FDA-Public Use
  Company Number: US-ROCHE-743228

PATIENT
  Sex: Male
  Weight: 97.5 kg

DRUGS (2)
  1. ACCUTANE [Suspect]
     Route: 065
     Dates: end: 19900501
  2. ACCUTANE [Suspect]
     Indication: ACNE
     Route: 065
     Dates: start: 19870101, end: 19890101

REACTIONS (12)
  - MENTAL DISORDER [None]
  - COLITIS ULCERATIVE [None]
  - GASTROINTESTINAL INJURY [None]
  - SUICIDAL IDEATION [None]
  - NIGHT BLINDNESS [None]
  - IRRITABLE BOWEL SYNDROME [None]
  - INFLAMMATORY BOWEL DISEASE [None]
  - DEPRESSION [None]
  - DRY SKIN [None]
  - VISION BLURRED [None]
  - LIP DRY [None]
  - DIZZINESS [None]
